FAERS Safety Report 8830696 (Version 1)
Quarter: 2012Q4

REPORT INFORMATION
  Report Type: 
  Country: CN (occurrence: CN)
  Receive Date: 20121009
  Receipt Date: 20121009
  Transmission Date: 20130627
  Serious: Yes (Other)
  Sender: FDA-Public Use
  Company Number: CN-JNJFOC-20121001432

PATIENT
  Sex: Male

DRUGS (4)
  1. KETOCONAZOLE [Suspect]
     Indication: PROSTATE CANCER METASTATIC
     Route: 048
  2. KETOCONAZOLE [Suspect]
     Indication: PROSTATE CANCER METASTATIC
     Route: 048
  3. PREDNISONE [Suspect]
     Indication: PROSTATE CANCER METASTATIC
     Route: 048
  4. LUTEINIZING HORMONE RELEASING HORMONE AGONIST [Concomitant]
     Route: 065

REACTIONS (10)
  - Blood testosterone decreased [Unknown]
  - Renal impairment [Unknown]
  - Liver function test abnormal [Unknown]
  - Erectile dysfunction [Unknown]
  - White blood cell count decreased [Unknown]
  - Prostatic specific antigen increased [Unknown]
  - Prostate cancer metastatic [Unknown]
  - Nausea [Unknown]
  - Decreased appetite [Unknown]
  - Vomiting [Unknown]
